FAERS Safety Report 5295950-0 (Version None)
Quarter: 2007Q2

REPORT INFORMATION
  Report Type: 
  Country: None (occurrence: None)
  Receive Date: 20070413
  Receipt Date: 20070404
  Transmission Date: 20071010
  Serious: Yes (Hospitalization, Other)
  Sender: FDA-Public Use
  Company Number: US-AMGEN-US214821

PATIENT
  Sex: Female
  Weight: 49.9 kg

DRUGS (13)
  1. AMG 706 [Suspect]
     Indication: METASTATIC NEOPLASM
     Route: 048
     Dates: start: 20070205, end: 20070307
  2. PANITUMUMAB [Suspect]
     Indication: METASTATIC NEOPLASM
     Route: 042
     Dates: start: 20070205, end: 20070205
  3. GEMCITABINE HCL [Concomitant]
     Route: 042
  4. CISPLATIN [Concomitant]
     Route: 042
  5. XANAX [Concomitant]
  6. FENTANYL [Concomitant]
     Route: 062
  7. DARVOCET-N 100 [Concomitant]
     Route: 048
  8. METOCLOPRAMIDE [Concomitant]
     Route: 048
  9. PREVACID [Concomitant]
  10. PHENERGAN HCL [Concomitant]
  11. NORVASC [Concomitant]
  12. SYNTHROID [Concomitant]
  13. OXYCODONE HCL [Concomitant]

REACTIONS (4)
  - ATRIAL FIBRILLATION [None]
  - DEEP VEIN THROMBOSIS [None]
  - PNEUMONIA [None]
  - PULMONARY EMBOLISM [None]
